FAERS Safety Report 6328038-8 (Version None)
Quarter: 2009Q3

REPORT INFORMATION
  Report Type: 
  Country: None (occurrence: None)
  Receive Date: 20090825
  Receipt Date: 20080908
  Transmission Date: 20100115
  Serious: No
  Sender: FDA-Public Use
  Company Number: US-ABBOTT-08P-163-0474733-00

PATIENT
  Sex: Female
  Weight: 90.8 kg

DRUGS (4)
  1. SYNTHROID [Suspect]
     Indication: THYROID FUNCTION TEST ABNORMAL
     Route: 048
     Dates: start: 19780101, end: 19940101
  2. SYNTHROID [Suspect]
     Dosage: 0.125MG AND 0.150MG ALTERNATE DOSING
     Route: 048
     Dates: start: 19940101, end: 20070101
  3. SYNTHROID [Suspect]
     Route: 048
     Dates: start: 20070101, end: 20080101
  4. SYNTHROID [Suspect]
     Dosage: 0.125MG/0.150MG ALTERNATE DOSING
     Route: 048
     Dates: start: 20080101

REACTIONS (6)
  - CARDIAC FLUTTER [None]
  - DRUG INEFFECTIVE [None]
  - FEELING ABNORMAL [None]
  - FEELING COLD [None]
  - SLUGGISHNESS [None]
  - THYROID FUNCTION TEST ABNORMAL [None]
